FAERS Safety Report 9790477 (Version 1)
Quarter: 2013Q4

REPORT INFORMATION
  Report Type: Report from Study
  Country: CN (occurrence: CN)
  Receive Date: 20131231
  Receipt Date: 20131231
  Transmission Date: 20140711
  Serious: Yes (Death)
  Sender: FDA-Public Use
  Company Number: CN-BAXTER-2013BAX053299

PATIENT
  Sex: 0

DRUGS (6)
  1. ENDOXAN 1G [Suspect]
     Indication: GLOMERULONEPHRITIS MEMBRANOUS
     Dosage: 0.8-1G PER SQUARE METER OF BODY SURFACE AREAS
     Route: 042
  2. ENDOXAN 1G [Suspect]
     Dosage: TOTAL DOSE OF 9-12 G/M2
     Route: 042
  3. PREDNISONE [Suspect]
     Indication: GLOMERULONEPHRITIS MEMBRANOUS
     Dosage: 1 MG/D PER KILOGRAM OF BODYWEIGHT
     Route: 048
  4. PREDNISONE [Suspect]
     Dosage: TAPERED FIRST BY 10 MG EVERY 2 WEEKS TO 30 MG/D
     Route: 048
  5. PREDNISONE [Suspect]
     Dosage: THEN TAPERED BY 5 MG EVERY TWO WEEKS TO 20 MG/D
     Route: 048
  6. PREDNISONE [Suspect]
     Dosage: FINALLY TAPERED BY 5 MG EVERY 4 WEEKS TO A MAINTENANCE DOSE OF 10 MG/D
     Route: 048

REACTIONS (1)
  - Death [Fatal]
